FAERS Safety Report 5312867-3 (Version None)
Quarter: 2007Q2

REPORT INFORMATION
  Report Type: 
  Country: None (occurrence: None)
  Receive Date: 20070430
  Receipt Date: 20070417
  Transmission Date: 20071010
  Serious: Yes (Other)
  Sender: FDA-Public Use
  Company Number: US-PFIZER INC-2007006047

PATIENT
  Sex: Male

DRUGS (1)
  1. LIPITOR [Suspect]

REACTIONS (12)
  - AMNESIA [None]
  - ATTENTION DEFICIT/HYPERACTIVITY DISORDER [None]
  - COGNITIVE DISORDER [None]
  - CORONARY ARTERY DISEASE [None]
  - DEPRESSION [None]
  - DISORIENTATION [None]
  - MUSCLE SPASMS [None]
  - MYOPATHY [None]
  - NEUROPATHY PERIPHERAL [None]
  - PAIN IN EXTREMITY [None]
  - SPEECH DISORDER [None]
  - TINNITUS [None]
